FAERS Safety Report 21223987 (Version 1)
Quarter: 2022Q3

REPORT INFORMATION
  Report Type: Spontaneous
  Country: US (occurrence: None)
  Receive Date: 20220817
  Receipt Date: 20220817
  Transmission Date: 20221027
  Serious: Yes (Death)
  Sender: FDA-Public Use
  Company Number: None

PATIENT
  Age: 73 Year
  Sex: Female

DRUGS (1)
  1. OLAPARIB [Suspect]
     Active Substance: OLAPARIB
     Dosage: FREQUENCY : TWICE A DAY;?
     Route: 048
     Dates: start: 20190807, end: 20210527

REACTIONS (1)
  - Acute myeloid leukaemia [None]

NARRATIVE: CASE EVENT DATE: 20210604
